FAERS Safety Report 16649349 (Version 1)
Quarter: 2019Q3

REPORT INFORMATION
  Report Type: Report from Study
  Country: US (occurrence: US)
  Receive Date: 20190730
  Receipt Date: 20190730
  Transmission Date: 20191004
  Serious: Yes (Other)
  Sender: FDA-Public Use
  Company Number: US-JNJFOC-20190734227

PATIENT
  Sex: Male

DRUGS (6)
  1. OCUVITE [Concomitant]
     Active Substance: VITAMINS
  2. MORPHINE [Concomitant]
     Active Substance: MORPHINE
  3. IMBRUVICA [Suspect]
     Active Substance: IBRUTINIB
     Indication: B-CELL SMALL LYMPHOCYTIC LYMPHOMA
     Dosage: 420 MG, QD
     Route: 048
     Dates: start: 20180531
  4. DILAUDID [Concomitant]
     Active Substance: HYDROMORPHONE HYDROCHLORIDE
  5. ASPIRIN                            /00002701/ [Concomitant]
     Active Substance: ASPIRIN
  6. XANAX [Concomitant]
     Active Substance: ALPRAZOLAM

REACTIONS (1)
  - Blood iron abnormal [Unknown]
